FAERS Safety Report 10201293 (Version 1)
Quarter: 2014Q2

REPORT INFORMATION
  Report Type: Spontaneous
  Country: FR (occurrence: FR)
  Receive Date: 20140528
  Receipt Date: 20140528
  Transmission Date: 20141212
  Serious: Yes (Hospitalization, Other)
  Sender: FDA-Public Use
  Company Number: FR-ASTRAZENECA-2014SE35353

PATIENT
  Age: 81 Year
  Sex: Female

DRUGS (3)
  1. CRESTOR [Suspect]
     Indication: HYPERCHOLESTEROLAEMIA
     Route: 048
     Dates: start: 20100916, end: 20130727
  2. CRESTOR [Suspect]
     Indication: HYPERCHOLESTEROLAEMIA
     Route: 048
     Dates: start: 20130801, end: 20130801
  3. FOZIRETIC [Suspect]
     Indication: HYPERTENSION
     Dosage: 20 MG/12.5 MG, 1 DF, EVERY DAY
     Route: 048
     Dates: start: 20110616, end: 20130727

REACTIONS (3)
  - Malaise [Recovered/Resolved]
  - Diarrhoea [Unknown]
  - Abdominal pain [Unknown]
